FAERS Safety Report 7201717-6 (Version None)
Quarter: 2010Q4

REPORT INFORMATION
  Report Type: 
  Country: None (occurrence: None)
  Receive Date: 20101229
  Receipt Date: 20101221
  Transmission Date: 20110411
  Serious: Yes (Life-Threatening)
  Sender: FDA-Public Use
  Company Number: PL-ROCHE-746540

PATIENT
  Sex: Male
  Weight: 90 kg

DRUGS (1)
  1. XELODA [Suspect]
     Indication: COLORECTAL CANCER
     Route: 048
     Dates: start: 20100102, end: 20100109

REACTIONS (2)
  - SKIN EXFOLIATION [None]
  - YELLOW SKIN [None]
